FAERS Safety Report 18616061 (Version 1)
Quarter: 2020Q4

REPORT INFORMATION
  Report Type: Spontaneous
  Country: ES (occurrence: ES)
  Receive Date: 20201214
  Receipt Date: 20201214
  Transmission Date: 20210114
  Serious: Yes (Other)
  Sender: FDA-Public Use
  Company Number: NVSC2020ES326883

PATIENT
  Age: 76 Year
  Sex: Male

DRUGS (4)
  1. LEVOFLOXACINO [Suspect]
     Active Substance: LEVOFLOXACIN
     Indication: PYREXIA
     Route: 048
     Dates: start: 20201111, end: 20201117
  2. DAPTOMICINA [Suspect]
     Active Substance: DAPTOMYCIN
     Indication: SUBCUTANEOUS ABSCESS
     Dosage: 900 MG, QD
     Route: 042
     Dates: start: 20201118
  3. PIPERACILINA+TAZOBACTAM [Suspect]
     Active Substance: PIPERACILLIN SODIUM\TAZOBACTAM SODIUM
     Indication: SUBCUTANEOUS ABSCESS
     Dosage: 4 G CADA 6 H
     Route: 042
     Dates: start: 20201118
  4. AMOXICILLIN,CLAVULANIC ACID [Suspect]
     Active Substance: AMOXICILLIN\CLAVULANIC ACID
     Indication: PYREXIA
     Route: 048
     Dates: start: 20201111, end: 20201117

REACTIONS (1)
  - Hepatitis [Recovering/Resolving]

NARRATIVE: CASE EVENT DATE: 20201120
